FAERS Safety Report 6760040-4 (Version None)
Quarter: 2010Q2

REPORT INFORMATION
  Report Type: 
  Country: None (occurrence: None)
  Receive Date: 20100524
  Receipt Date: 20100205
  Transmission Date: 20101027
  Serious: No
  Sender: FDA-Public Use
  Company Number: 8055121

PATIENT
  Sex: Male
  Weight: 68.1 kg

DRUGS (14)
  1. CIMZIA [Suspect]
     Indication: CROHN'S DISEASE
     Dosage: (400 MG SUBCUTANEOUS) ; (400 MG EVERY 3 WEEKS SUBCUTANEOUS) ; (DILUTANT)
     Route: 058
     Dates: start: 20080101, end: 20091101
  2. CIMZIA [Suspect]
     Indication: CROHN'S DISEASE
     Dosage: (400 MG SUBCUTANEOUS) ; (400 MG EVERY 3 WEEKS SUBCUTANEOUS) ; (DILUTANT)
     Route: 058
     Dates: start: 20091101
  3. CIMZIA [Suspect]
  4. CIMZIA [Suspect]
  5. SWINE FLU VACCINE, MONOVALENT (NOT SPECIFIED) [Suspect]
     Indication: ANTIVIRAL PROPHYLAXIS
     Dates: start: 20091108, end: 20091108
  6. PREDNISONE [Concomitant]
  7. FLAGYL [Concomitant]
  8. NEXIUM [Concomitant]
  9. MINOCYCLINE HCL [Concomitant]
  10. VITAMIN D [Concomitant]
  11. ZOLEDRONIC ACID [Concomitant]
  12. IRON [Concomitant]
  13. ENTOCORT EC [Concomitant]
  14. VITAMIN TAB [Concomitant]

REACTIONS (4)
  - CROHN'S DISEASE [None]
  - HEADACHE [None]
  - HERPES ZOSTER [None]
  - PYREXIA [None]
